FAERS Safety Report 14430655 (Version 4)
Quarter: 2018Q1

REPORT INFORMATION
  Report Type: Report from Study
  Country: DE (occurrence: DE)
  Receive Date: 20180124
  Receipt Date: 20180220
  Transmission Date: 20180509
  Serious: Yes (Death, Other)
  Sender: FDA-Public Use
  Company Number: DE-IPSEN BIOPHARMACEUTICALS, INC.-2018-01085

PATIENT
  Sex: Male
  Weight: 83 kg

DRUGS (18)
  1. PEGYLATED LIPOSOMAL IRINOTECAN [Suspect]
     Active Substance: IRINOTECAN HYDROCHLORIDE
     Indication: COLORECTAL CANCER METASTATIC
     Dosage: 300 MG
     Route: 065
     Dates: start: 20170125, end: 20170125
  2. FLUOROURACIL. [Suspect]
     Active Substance: FLUOROURACIL
     Indication: COLORECTAL CANCER METASTATIC
     Route: 040
     Dates: start: 20170125
  3. FLUOROURACIL. [Suspect]
     Active Substance: FLUOROURACIL
     Route: 042
     Dates: start: 20170125
  4. DOXYCYCLIN [Concomitant]
     Active Substance: DOXYCYCLINE
     Dates: start: 20170125
  5. HYDROCORTISON [Concomitant]
     Active Substance: HYDROCORTISONE
     Dates: start: 20170125
  6. PANTOPRAZOLE RATIOPHARM [Concomitant]
     Dates: start: 20170224
  7. PEGYLATED LIPOSOMAL IRINOTECAN [Suspect]
     Active Substance: IRINOTECAN HYDROCHLORIDE
     Indication: OFF LABEL USE
     Dosage: 290 MG
     Route: 065
     Dates: start: 20170322, end: 20170322
  8. NOVALGIN (METAMIZOLE SODIUM) [Concomitant]
     Active Substance: METAMIZOLE SODIUM
  9. FOLINIC ACID [Suspect]
     Active Substance: LEUCOVORIN
     Indication: COLORECTAL CANCER METASTATIC
     Dates: start: 20170125, end: 20170322
  10. PANTOPRAZOLE [Concomitant]
     Active Substance: PANTOPRAZOLE
     Dates: start: 20170224
  11. ALOXI [Concomitant]
     Active Substance: PALONOSETRON HYDROCHLORIDE
     Dates: start: 20170125, end: 20170322
  12. FORTECORTIN [Concomitant]
     Active Substance: DEXAMETHASONE
     Dates: start: 20170125, end: 20170322
  13. PANITUMUMAB [Suspect]
     Active Substance: PANITUMUMAB
     Indication: COLORECTAL CANCER METASTATIC
     Route: 042
     Dates: start: 20170322, end: 20170322
  14. PANITUMUMAB [Suspect]
     Active Substance: PANITUMUMAB
     Route: 042
     Dates: start: 20170125
  15. GRANISETRON [Concomitant]
     Active Substance: GRANISETRON
     Dates: start: 20170125, end: 20170322
  16. FLUOROURACIL. [Suspect]
     Active Substance: FLUOROURACIL
     Route: 040
     Dates: start: 20170322
  17. FLUOROURACIL. [Suspect]
     Active Substance: FLUOROURACIL
     Route: 042
     Dates: start: 20170322
  18. DOXYCYCLIN RATIOPHARM [Concomitant]
     Dates: start: 20170125

REACTIONS (4)
  - Off label use [Unknown]
  - Malignant neoplasm progression [Fatal]
  - Rash generalised [Fatal]
  - Metastases to lung [Fatal]

NARRATIVE: CASE EVENT DATE: 20170208
